FAERS Safety Report 24863850 (Version 1)
Quarter: 2025Q1

REPORT INFORMATION
  Report Type: Spontaneous
  Country: US (occurrence: US)
  Receive Date: 20250120
  Receipt Date: 20250120
  Transmission Date: 20250409
  Serious: No
  Sender: Phathom Pharmaceuticals
  Company Number: US-PHATHOM PHARMACEUTICALS INC.-2024PHT01187

PATIENT
  Age: 72 Year
  Sex: Male

DRUGS (1)
  1. VOQUEZNA [Suspect]
     Active Substance: VONOPRAZAN FUMARATE
     Indication: Erosive oesophagitis
     Dosage: 20 MG, 1X/DAY
     Route: 048
     Dates: start: 20241016, end: 20241016

REACTIONS (6)
  - Gastrooesophageal reflux disease [Recovering/Resolving]
  - Chest pain [Recovering/Resolving]
  - Oesophagitis [Recovering/Resolving]
  - Oesophageal pain [Recovering/Resolving]
  - Abdominal pain upper [Recovering/Resolving]
  - Headache [Recovering/Resolving]

NARRATIVE: CASE EVENT DATE: 20241016
